FAERS Safety Report 13623576 (Version 1)
Quarter: 2017Q2

REPORT INFORMATION
  Report Type: Spontaneous
  Country: US (occurrence: US)
  Receive Date: 20170608
  Receipt Date: 20170608
  Transmission Date: 20170830
  Serious: No
  Sender: FDA-Public Use
  Company Number: US-B.I. PHARMACEUTICALS,INC./RIDGEFIELD-2017-BI-030944

PATIENT
  Sex: Female

DRUGS (3)
  1. XOPENEX INHALER [Concomitant]
     Indication: TRACHEOBRONCHEOPATHIA OSTEOCLASTICA
     Route: 065
     Dates: start: 2012
  2. SPIRIVA [Suspect]
     Active Substance: TIOTROPIUM BROMIDE MONOHYDRATE
     Indication: TRACHEOBRONCHEOPATHIA OSTEOCLASTICA
     Route: 055
     Dates: start: 2014, end: 2014
  3. VENTOLIN [Suspect]
     Active Substance: ALBUTEROL SULFATE
     Indication: TRACHEOBRONCHEOPATHIA OSTEOCLASTICA
     Route: 055
     Dates: start: 2014, end: 2014

REACTIONS (2)
  - Off label use [Unknown]
  - Palpitations [Recovered/Resolved]

NARRATIVE: CASE EVENT DATE: 2014
